FAERS Safety Report 22207399 (Version 1)
Quarter: 2023Q2

REPORT INFORMATION
  Report Type: Spontaneous
  Country: SI (occurrence: SI)
  Receive Date: 20230413
  Receipt Date: 20230413
  Transmission Date: 20230722
  Serious: Yes (Hospitalization, Other)
  Sender: FDA-Public Use
  Company Number: SI-BAYER-2022A058598

PATIENT
  Age: 86 Year
  Sex: Female
  Weight: 58 kg

DRUGS (18)
  1. XARELTO [Suspect]
     Active Substance: RIVAROXABAN
     Indication: Atrial fibrillation
     Route: 048
  2. TORSEMIDE [Concomitant]
     Active Substance: TORSEMIDE
     Dosage: 10 MG
  3. RAMIPRIL/HCT ALTERNOVA [Concomitant]
  4. BISOPROLOL [Concomitant]
     Active Substance: BISOPROLOL
     Dosage: 2.5 MG
  5. PANTOPRAZOLE [Concomitant]
     Active Substance: PANTOPRAZOLE
     Dosage: 20 MG
  6. CHOLECALCIFEROL [Concomitant]
     Active Substance: CHOLECALCIFEROL
     Dosage: 1400 IU
  7. TIZANIDINE [Concomitant]
     Active Substance: TIZANIDINE
     Dosage: 2 MG
  8. BETAHISTINE [Concomitant]
     Active Substance: BETAHISTINE
     Dosage: 24 MG
  9. CLINDAMYCIN HYDROCHLORIDE [Concomitant]
     Active Substance: CLINDAMYCIN HYDROCHLORIDE
  10. ACETAMINOPHEN\TRAMADOL [Concomitant]
     Active Substance: ACETAMINOPHEN\TRAMADOL
  11. HEPARIN CALCIUM [Concomitant]
     Active Substance: HEPARIN CALCIUM
  12. TAMIFLU [Concomitant]
     Active Substance: OSELTAMIVIR PHOSPHATE
  13. FENTANIL [FENTANYL] [Concomitant]
  14. CEFUROKSIM [Concomitant]
  15. QUETIAPINE FUMARATE [Concomitant]
     Active Substance: QUETIAPINE FUMARATE
  16. FENOTEROL\IPRATROPIUM BROMIDE [Concomitant]
     Active Substance: FENOTEROL\IPRATROPIUM BROMIDE
  17. ACETILCISTEIN BP [Concomitant]
  18. LACTULOSE [Concomitant]
     Active Substance: LACTULOSE

REACTIONS (6)
  - Pulmonary oedema [Recovering/Resolving]
  - Aortic stenosis [Not Recovered/Not Resolved]
  - Cough [Recovering/Resolving]
  - Oesophageal achalasia [Not Recovered/Not Resolved]
  - Dysphagia [Not Recovered/Not Resolved]
  - Dyspnoea [Recovering/Resolving]
